FAERS Safety Report 5107136-0 (Version None)
Quarter: 2006Q3

REPORT INFORMATION
  Report Type: 
  Country: None (occurrence: None)
  Receive Date: 20060913
  Receipt Date: 20060906
  Transmission Date: 20061208
  Serious: Yes (Other)
  Sender: FDA-Public Use
  Company Number: 2006107374

PATIENT
  Age: 19 Year
  Sex: Female
  Weight: 57.1532 kg

DRUGS (2)
  1. SUDAFED 12 HOUR [Suspect]
     Indication: RHINORRHOEA
     Dosage: 1 TABLET AS NEEDED, ORAL
     Route: 048
     Dates: start: 20060101
  2. MONTELUKAST SODIUM [Concomitant]

REACTIONS (2)
  - ABORTION SPONTANEOUS [None]
  - DRUG EXPOSURE DURING PREGNANCY [None]
